FAERS Safety Report 6013820-7 (Version None)
Quarter: 2008Q4

REPORT INFORMATION
  Report Type: 
  Country: None (occurrence: None)
  Receive Date: 20081219
  Receipt Date: 20081209
  Transmission Date: 20090506
  Serious: Yes (Other)
  Sender: FDA-Public Use
  Company Number: JP-PFIZER INC-2008097480

PATIENT

DRUGS (9)
  1. VIBRAMYCIN [Suspect]
     Indication: ACNE
  2. LUVOX [Concomitant]
  3. LEXOTAN [Concomitant]
  4. RISPERDAL [Concomitant]
  5. CONTOMIN [Concomitant]
  6. VEGETAMIN [Concomitant]
  7. WINTERMIN [Concomitant]
  8. VIBRAMYCIN [Suspect]
     Indication: ACNE
  9. ACUATIM (NADIFLOXACIN) ? [Concomitant]

REACTIONS (3)
  - AGITATION [None]
  - MALAISE [None]
  - RASH [None]
